FAERS Safety Report 11645703 (Version 2)
Quarter: 2016Q1

REPORT INFORMATION
  Report Type: Spontaneous
  Country: US (occurrence: US)
  Receive Date: 20151020
  Receipt Date: 20160211
  Transmission Date: 20160525
  Serious: Yes (Hospitalization)
  Sender: FDA-Public Use
  Company Number: US-ACTELION-A-NJ2015-125616

PATIENT
  Age: 15 Month
  Sex: Male

DRUGS (13)
  1. LANSOPRAZOLE. [Concomitant]
     Active Substance: LANSOPRAZOLE
     Dosage: 2.5 ML, QD
     Dates: start: 20150618
  2. AMLODIPINE [Concomitant]
     Active Substance: AMLODIPINE BESYLATE
     Dosage: 0.5 TBS, QD
     Dates: start: 20150616
  3. NYSTATIN. [Concomitant]
     Active Substance: NYSTATIN
     Dosage: 1 ML, TID
     Dates: start: 20150618
  4. VALCYTE [Concomitant]
     Active Substance: VALGANCICLOVIR HYDROCHLORIDE
     Dosage: 3.5 ML, QD
     Dates: start: 20150619
  5. METOCLOPRAMIDE. [Concomitant]
     Active Substance: METOCLOPRAMIDE
     Dosage: 1.3 ML, BID
     Dates: start: 20150619
  6. ASPIRIN. [Concomitant]
     Active Substance: ASPIRIN
     Dosage: 0.5 MG, QD
     Dates: start: 20150618
  7. IRON COMPLEX [Concomitant]
     Dosage: 0.5 ML, QD
     Dates: start: 20150618
  8. TRIGLYCERIDES [Concomitant]
     Dosage: 2.5 ML, QD
     Dates: start: 20150618
  9. VITAMIN D [Concomitant]
     Active Substance: CHOLECALCIFEROL
     Dosage: 2.5 ML, QD
     Dates: start: 20150618
  10. ZAVESCA [Suspect]
     Active Substance: MIGLUSTAT
     Indication: NIEMANN-PICK DISEASE
     Dosage: 100 MG, QD
     Route: 048
     Dates: start: 20150618
  11. MAGONATE [Concomitant]
     Active Substance: MAGNESIUM CARBONATE
     Dosage: 2.5 ML, Q8HOURS
     Dates: start: 20150618
  12. ATOVAQUONE. [Concomitant]
     Active Substance: ATOVAQUONE
     Dosage: 1.8 ML, QD
  13. TACROLIMUS. [Concomitant]
     Active Substance: TACROLIMUS
     Dosage: UNK, BID

REACTIONS (1)
  - Biopsy liver [Recovered/Resolved]

NARRATIVE: CASE EVENT DATE: 20150918
